FAERS Safety Report 7840937-4 (Version None)
Quarter: 2011Q4

REPORT INFORMATION
  Report Type: 
  Country: None (occurrence: None)
  Receive Date: 20111021
  Receipt Date: 20111021
  Transmission Date: 20120403
  Serious: Yes (Disabling, Congenital Anomaly)
  Sender: FDA-Public Use
  Company Number: None

PATIENT
  Sex: Female
  Weight: 81.6475 kg

DRUGS (3)
  1. DIVALPROEX SODIUM [Suspect]
     Dosage: 3 PILLS A DAY
  2. OVALPORIC ACID [Concomitant]
  3. ZYPREXA [Suspect]
     Dosage: 2 PILLS AT BEDTIME

REACTIONS (2)
  - INSOMNIA [None]
  - COUGH [None]
